FAERS Safety Report 5883476-2 (Version None)
Quarter: 2008Q3

REPORT INFORMATION
  Report Type: 
  Country: None (occurrence: None)
  Receive Date: 20080915
  Receipt Date: 20080904
  Transmission Date: 20090109
  Serious: Yes (Other)
  Sender: FDA-Public Use
  Company Number: US-ROCHE-584714

PATIENT
  Sex: Female

DRUGS (1)
  1. BONIVA [Suspect]
     Indication: DRUG USE FOR UNKNOWN INDICATION
     Dosage: FORMULATION: PREFILLED SYRINGE. DOSE: 3MG/3ML
     Route: 065
     Dates: start: 20071201

REACTIONS (5)
  - ARTHRALGIA [None]
  - BONE PAIN [None]
  - MYALGIA [None]
  - SPINAL FRACTURE [None]
  - TOOTHACHE [None]
